FAERS Safety Report 7727752-7 (Version None)
Quarter: 2011Q3

REPORT INFORMATION
  Report Type: 
  Country: None (occurrence: None)
  Receive Date: 20110902
  Receipt Date: 20110819
  Transmission Date: 20111222
  Serious: No
  Sender: FDA-Public Use
  Company Number: US-ASTRAZENECA-2011SE24439

PATIENT
  Age: 58 Year
  Sex: Male
  Weight: 136.1 kg

DRUGS (4)
  1. MULTIVITAMIN [Suspect]
  2. SEROQUEL [Suspect]
     Indication: SLEEP DISORDER
     Route: 048
     Dates: start: 20030101
  3. CRESTOR [Suspect]
     Indication: HYPOCHOLESTEROLAEMIA
     Route: 048
     Dates: start: 20030101
  4. IODINE [Suspect]

REACTIONS (11)
  - GOUT [None]
  - PSORIATIC ARTHROPATHY [None]
  - DENTAL CARE [None]
  - MYALGIA [None]
  - NERVE INJURY [None]
  - FIBROMYALGIA [None]
  - PSORIASIS [None]
  - ABDOMINAL DISCOMFORT [None]
  - PHARYNGEAL MASS [None]
  - GOITRE [None]
  - ARTHRITIS [None]
